FAERS Safety Report 18408779 (Version 2)
Quarter: 2020Q4

REPORT INFORMATION
  Report Type: Spontaneous
  Country: US (occurrence: US)
  Receive Date: 20201020
  Receipt Date: 20201230
  Transmission Date: 20210114
  Serious: No
  Sender: FDA-Public Use
  Company Number: US-GILEAD-2020-0500220

PATIENT
  Sex: Male

DRUGS (10)
  1. LISINOPRIL. [Concomitant]
     Active Substance: LISINOPRIL
  2. NOVOLOG [Concomitant]
     Active Substance: INSULIN ASPART
  3. ATORVASTATIN CALCIUM. [Concomitant]
     Active Substance: ATORVASTATIN CALCIUM
  4. IRON [Concomitant]
     Active Substance: IRON
  5. LABETALOL HYDROCHLORIDE. [Concomitant]
     Active Substance: LABETALOL HYDROCHLORIDE
  6. PREDNISONE. [Concomitant]
     Active Substance: PREDNISONE
  7. VITAMIN D [VITAMIN D NOS] [Concomitant]
     Active Substance: VITAMIN D NOS
  8. PROGRAF [Concomitant]
     Active Substance: TACROLIMUS
  9. LANTUS [Concomitant]
     Active Substance: INSULIN GLARGINE
  10. EPCLUSA [Suspect]
     Active Substance: SOFOSBUVIR\VELPATASVIR
     Indication: CHRONIC HEPATITIS C
     Dosage: 1 DOSAGE FORM, QD
     Route: 048
     Dates: start: 20200926, end: 20201212

REACTIONS (5)
  - Blister [Recovered/Resolved]
  - Vomiting [Unknown]
  - Asthenia [Unknown]
  - Rash [Recovered/Resolved]
  - Nightmare [Recovered/Resolved]
